FAERS Safety Report 18389373 (Version 2)
Quarter: 2021Q4

REPORT INFORMATION
  Report Type: Spontaneous
  Country: US (occurrence: US)
  Receive Date: 20201016
  Receipt Date: 20211130
  Transmission Date: 20220303
  Serious: Yes (Other)
  Sender: FDA-Public Use
  Company Number: US-SAARTEMIS-SAC202010090047

PATIENT
  Age: 59 Year
  Sex: Female

DRUGS (1)
  1. ZANTAC [Suspect]
     Active Substance: RANITIDINE HYDROCHLORIDE
     Dosage: 25 MG, QD
     Dates: start: 199607, end: 201001

REACTIONS (3)
  - Pancreatic carcinoma [Unknown]
  - Bladder cancer stage II [Recovering/Resolving]
  - Hepatic cancer stage IV [Unknown]

NARRATIVE: CASE EVENT DATE: 20190101
